FAERS Safety Report 8814150 (Version 3)
Quarter: 2013Q1

REPORT INFORMATION
  Report Type: Spontaneous
  Country: IT (occurrence: None)
  Receive Date: 20120925
  Receipt Date: 20121129
  Transmission Date: 20140127
  Serious: Yes (Hospitalization)
  Sender: FDA-Public Use
  Company Number: US-2012-11393

PATIENT
  Age: 35 Year
  Sex: Male

DRUGS (3)
  1. TOLVAPTAN [Suspect]
     Indication: CONGENITAL CYSTIC KIDNEY DISEASE
     Dosage: 60/30 MG MILLIGRAM(S), DAILY DOSE, ORAL
     Dates: start: 20111123, end: 20120909
  2. COVERSYL [Concomitant]
  3. LIBRADIN (BARNIDIPINE HYDROCHLORIDE) [Concomitant]

REACTIONS (2)
  - Back pain [None]
  - Appendicitis [None]
